FAERS Safety Report 6292317-3 (Version None)
Quarter: 2009Q3

REPORT INFORMATION
  Report Type: 
  Country: None (occurrence: None)
  Receive Date: 20090730
  Receipt Date: 20090730
  Transmission Date: 20100115
  Serious: No
  Sender: FDA-Public Use
  Company Number: None

PATIENT
  Sex: Female

DRUGS (1)
  1. LEVOTHYROXINE SODIUM [Suspect]
     Indication: AUTOIMMUNE THYROIDITIS
     Dosage: 50 MCG ONE TABLET DAILY BY MOUTH
     Route: 048
     Dates: start: 20051201, end: 20070401

REACTIONS (2)
  - ARTHRALGIA [None]
  - PRODUCT SUBSTITUTION ISSUE [None]
